FAERS Safety Report 24681910 (Version 2)
Quarter: 2024Q4

REPORT INFORMATION
  Report Type: Spontaneous
  Country: PL (occurrence: PL)
  Receive Date: 20241130
  Receipt Date: 20241202
  Transmission Date: 20250115
  Serious: Yes (Life-Threatening, Hospitalization)
  Sender: ABBVIE
  Company Number: PL-ABBVIE-6025954

PATIENT
  Age: 34 Year
  Sex: Female

DRUGS (4)
  1. BOTOX [Suspect]
     Active Substance: ONABOTULINUMTOXINA
     Indication: Skin wrinkling
     Dosage: TIME INTERVAL: AS NECESSARY: TWO DOSE UNIT 1.5 UNIT EACH
     Route: 030
     Dates: start: 20241024, end: 20241024
  2. BOTOX [Suspect]
     Active Substance: ONABOTULINUMTOXINA
     Indication: Skin wrinkling
     Dosage: TIME INTERVAL: AS NECESSARY: 20 UNITS
     Route: 030
     Dates: start: 20241010, end: 20241010
  3. BOTOX [Suspect]
     Active Substance: ONABOTULINUMTOXINA
     Indication: Skin wrinkling
     Dosage: TIME INTERVAL: AS NECESSARY: 20 UNITS
     Route: 030
     Dates: start: 20241010, end: 20241010
  4. BOTOX [Suspect]
     Active Substance: ONABOTULINUMTOXINA
     Indication: Skin wrinkling
     Dosage: TIME INTERVAL: AS NECESSARY: 24 UNITS
     Route: 030
     Dates: start: 20241010, end: 20241010

REACTIONS (10)
  - Monoparesis [Unknown]
  - Hypoaesthesia [Recovering/Resolving]
  - Cerebrovascular accident [Unknown]
  - Malaise [Unknown]
  - Diarrhoea [Recovering/Resolving]
  - Musculoskeletal stiffness [Recovering/Resolving]
  - Facial paresis [Unknown]
  - Dysphagia [Unknown]
  - Mephisto sign [Unknown]
  - Headache [Unknown]

NARRATIVE: CASE EVENT DATE: 20241010
